FAERS Safety Report 12694146 (Version 4)
Quarter: 2016Q4

REPORT INFORMATION
  Report Type: Spontaneous
  Country: US (occurrence: US)
  Receive Date: 20160829
  Receipt Date: 20161007
  Transmission Date: 20170207
  Serious: No
  Sender: FDA-Public Use
  Company Number: US-PFIZER INC-2016402955

PATIENT
  Age: 67 Year
  Sex: Female

DRUGS (11)
  1. BIOTIN [Concomitant]
     Active Substance: BIOTIN
     Dosage: 5000 UG, UNK
     Route: 048
     Dates: start: 20150102
  2. LYRICA [Suspect]
     Active Substance: PREGABALIN
     Dosage: 300 MG, 2X/DAY
     Route: 048
     Dates: start: 20160711, end: 20160829
  3. IRON [Concomitant]
     Active Substance: IRON
     Dosage: 325 MG, UNK (65 FE)
     Route: 048
     Dates: start: 20150102
  4. TYLENOL WITH CODEINE [Concomitant]
     Active Substance: ACETAMINOPHEN\CODEINE PHOSPHATE
     Indication: PAIN
     Dosage: 1 DF AS NEEDED [CODEINE PHOSPHATE: 30 MG]/[PARACETAMOL: 300 MG](TAKE ONE TABLET EVERY 6 HOURS)
     Route: 048
     Dates: start: 20160701
  5. PLAQUENIL [Concomitant]
     Active Substance: HYDROXYCHLOROQUINE SULFATE
     Dosage: 200 MG, 2X/DAY
     Route: 048
     Dates: start: 20160310
  6. DALMANE [Concomitant]
     Active Substance: FLURAZEPAM HYDROCHLORIDE
     Indication: SLEEP DISORDER
     Dosage: 15 MG, AS NEEDED (TAKE 1 CAPSULE AT NIGHT)
     Route: 048
     Dates: start: 20160602
  7. ZOFRAN [Concomitant]
     Active Substance: ONDANSETRON HYDROCHLORIDE
     Indication: NAUSEA
     Dosage: 4 MG, AS NEEDED (TAKE 1 TABLET EVERY 8 HOURS)
     Route: 048
     Dates: start: 20160601
  8. ZOFRAN [Concomitant]
     Active Substance: ONDANSETRON HYDROCHLORIDE
     Indication: VOMITING
  9. PROTONIX [Concomitant]
     Active Substance: PANTOPRAZOLE SODIUM
     Dosage: 40 MG, DAILY
     Route: 048
     Dates: start: 20160601
  10. LYRICA [Suspect]
     Active Substance: PREGABALIN
     Dosage: 300 MG, 2X/DAY
     Route: 048
     Dates: start: 20160829
  11. LYRICA [Suspect]
     Active Substance: PREGABALIN
     Indication: HYPOAESTHESIA
     Dosage: 300 MG, 2X/DAY
     Route: 048
     Dates: start: 2000

REACTIONS (1)
  - Hypoacusis [Unknown]
